FAERS Safety Report 24964418 (Version 1)
Quarter: 2025Q1

REPORT INFORMATION
  Report Type: Spontaneous
  Country: FR (occurrence: FR)
  Receive Date: 20250213
  Receipt Date: 20250213
  Transmission Date: 20250409
  Serious: Yes (Life-Threatening, Hospitalization)
  Sender: RANBAXY
  Company Number: FR-SUN PHARMACEUTICAL INDUSTRIES LTD-2025RR-493550

PATIENT
  Age: 72 Year
  Sex: Female
  Weight: 74 kg

DRUGS (14)
  1. AMIODARONE [Suspect]
     Active Substance: AMIODARONE
     Indication: Arrhythmia
     Dosage: 200 MILLIGRAM, DAILY
     Route: 048
  2. AMIODARONE [Suspect]
     Active Substance: AMIODARONE
     Dosage: 200 MILLIGRAM, DAILY
     Route: 048
     Dates: start: 20241203
  3. GLICLAZIDE [Suspect]
     Active Substance: GLICLAZIDE
     Indication: Type 2 diabetes mellitus
     Dosage: 90 MILLIGRAM, BID
     Route: 048
  4. ROSUVASTATIN [Suspect]
     Active Substance: ROSUVASTATIN
     Indication: Dyslipidaemia
     Dosage: 5 MILLIGRAM, DAILY
     Route: 048
  5. ACETAMINOPHEN [Suspect]
     Active Substance: ACETAMINOPHEN
     Indication: Pain
     Dosage: 1 AS NECESSARY, QID
     Route: 048
  6. OMEPRAZOLE [Suspect]
     Active Substance: OMEPRAZOLE
     Indication: Product used for unknown indication
     Dosage: 1 AS NECESSARY, DAILY
     Route: 048
  7. FLUOXETINE [Suspect]
     Active Substance: FLUOXETINE HYDROCHLORIDE
     Indication: Mixed anxiety and depressive disorder
     Dosage: 20 MILLIGRAM, DAILY
     Route: 048
     Dates: start: 20241016, end: 20241112
  8. METOCLOPRAMIDE [Suspect]
     Active Substance: METOCLOPRAMIDE
     Indication: Nausea
     Dosage: 1 AS NECESSARY, TID
     Route: 048
  9. LEVOTHYROXINE [Concomitant]
     Active Substance: LEVOTHYROXINE
     Indication: Hypothyroidism
     Dosage: 125 MCG, DAILY
     Route: 048
  10. BISOPROLOL [Concomitant]
     Active Substance: BISOPROLOL
     Indication: Hypertension
     Dosage: 5 MILLIGRAM, DAILY
     Route: 048
  11. AMPHOTERICIN B [Concomitant]
     Active Substance: AMPHOTERICIN B
     Indication: Stomatitis
     Dosage: 1 DOSAGE FORM, BID
     Route: 002
     Dates: end: 20241124
  12. AMPHOTERICIN B [Concomitant]
     Active Substance: AMPHOTERICIN B
     Dosage: 1 DOSAGE FORM, BID
     Route: 002
     Dates: start: 20241202
  13. INNOHEP [Concomitant]
     Active Substance: TINZAPARIN SODIUM
     Indication: Product used for unknown indication
     Dosage: 13000 INTERNATIONAL UNIT, DAILY
     Route: 058
  14. PREGABALIN [Concomitant]
     Active Substance: PREGABALIN
     Indication: Mixed anxiety and depressive disorder
     Dosage: 100 MILLIGRAM, BID
     Route: 048

REACTIONS (1)
  - Hepatic cytolysis [Recovering/Resolving]
